FAERS Safety Report 4612757-5 (Version None)
Quarter: 2005Q1

REPORT INFORMATION
  Report Type: 
  Country: None (occurrence: None)
  Receive Date: 20050316
  Receipt Date: 20050304
  Transmission Date: 20050727
  Serious: Yes (Death)
  Sender: FDA-Public Use
  Company Number: 2005041242

PATIENT
  Age: 36 Year
  Sex: Male

DRUGS (1)
  1. NEURONTIN [Suspect]
     Indication: MULTIPLE SCLEROSIS

REACTIONS (1)
  - COMPLETED SUICIDE [None]
